FAERS Safety Report 7779987-5 (Version None)
Quarter: 2011Q3

REPORT INFORMATION
  Report Type: 
  Country: None (occurrence: None)
  Receive Date: 20110927
  Receipt Date: 20110915
  Transmission Date: 20111222
  Serious: No
  Sender: FDA-Public Use
  Company Number: US-JNJFOC-20110601654

PATIENT
  Sex: Male
  Weight: 90.72 kg

DRUGS (7)
  1. ARTANE [Concomitant]
     Route: 065
  2. INVEGA SUSTENNA [Suspect]
     Indication: SCHIZOAFFECTIVE DISORDER
     Route: 030
     Dates: start: 20110408
  3. INVEGA SUSTENNA [Suspect]
     Route: 030
     Dates: start: 20100913
  4. VALPROATE SODIUM [Concomitant]
     Indication: BIPOLAR DISORDER
     Route: 065
  5. CELEXA [Concomitant]
     Indication: DEPRESSION
     Route: 065
  6. KLONOPIN [Concomitant]
     Route: 065
  7. PRAZOSIN HCL [Concomitant]
     Route: 065

REACTIONS (1)
  - INJECTION SITE NODULE [None]
